FAERS Safety Report 21618836 (Version 1)
Quarter: 2022Q4

REPORT INFORMATION
  Report Type: Spontaneous
  Country: DE (occurrence: DE)
  Receive Date: 20221119
  Receipt Date: 20221119
  Transmission Date: 20230113
  Serious: Yes (Hospitalization, Other)
  Sender: FDA-Public Use
  Company Number: DE-ADRED-07944-01

PATIENT
  Age: 65 Year
  Sex: Female
  Weight: 74 kg

DRUGS (1)
  1. IBUPROFEN [Suspect]
     Active Substance: IBUPROFEN
     Indication: Product used for unknown indication

REACTIONS (7)
  - General physical health deterioration [Recovered/Resolved]
  - Electrocardiogram abnormal [Recovered/Resolved]
  - Cardiac failure [Recovered/Resolved]
  - Systemic infection [Recovered/Resolved]
  - Dyspnoea [Recovered/Resolved]
  - Renal impairment [Recovered/Resolved]
  - Oedema peripheral [Recovered/Resolved]
